FAERS Safety Report 4887619-9 (Version None)
Quarter: 2006Q1

REPORT INFORMATION
  Report Type: 
  Country: None (occurrence: None)
  Receive Date: 20060123
  Receipt Date: 20060110
  Transmission Date: 20060701
  Serious: Yes (Hospitalization, Other)
  Sender: FDA-Public Use
  Company Number: PHBS2006US00767

PATIENT
  Age: 36 Year
  Sex: Male

DRUGS (4)
  1. THORAZINE [Concomitant]
     Indication: HICCUPS
  2. CARBAMAZEPINE [Suspect]
     Indication: HICCUPS
  3. COMPAZINE [Suspect]
     Indication: HICCUPS
  4. CYCLOSPORINE [Suspect]
     Indication: HEART AND LUNG TRANSPLANT

REACTIONS (5)
  - DRUG INTERACTION [None]
  - DRUG LEVEL BELOW THERAPEUTIC [None]
  - FATIGUE [None]
  - HEART-LUNG TRANSPLANT REJECTION [None]
  - HICCUPS [None]
